FAERS Safety Report 21377027 (Version 3)
Quarter: 2023Q2

REPORT INFORMATION
  Report Type: Spontaneous
  Country: US (occurrence: US)
  Receive Date: 20220926
  Receipt Date: 20230504
  Transmission Date: 20230721
  Serious: No
  Sender: FDA-Public Use
  Company Number: US-BRISTOL-MYERS SQUIBB COMPANY-2022-111597

PATIENT
  Age: 56 Year
  Sex: Female

DRUGS (4)
  1. REVLIMID [Suspect]
     Active Substance: LENALIDOMIDE
     Indication: Plasma cell myeloma
     Dosage: 25 MG BY MOUTH DAILY FOR 21 DAYS WITH 7 DAYS REST FOR A TOTAL OF A 28 DAY CYCLE.
     Route: 048
     Dates: start: 20200201
  2. VITAMIN D3 [Concomitant]
     Active Substance: CHOLECALCIFEROL
     Indication: Product used for unknown indication
     Route: 048
  3. VITAMIN B12 [Concomitant]
     Active Substance: CYANOCOBALAMIN
     Indication: Product used for unknown indication
  4. XARELTO [Concomitant]
     Active Substance: RIVAROXABAN
     Indication: Product used for unknown indication
     Dosage: XARELTO TAB 20MG

REACTIONS (4)
  - COVID-19 [Unknown]
  - Diarrhoea [Unknown]
  - Condition aggravated [Unknown]
  - Nausea [Unknown]

NARRATIVE: CASE EVENT DATE: 20221019
